FAERS Safety Report 9778566 (Version 1)
Quarter: 2013Q4

REPORT INFORMATION
  Report Type: Spontaneous
  Country: US (occurrence: None)
  Receive Date: 20131220
  Receipt Date: 20131220
  Transmission Date: 20140711
  Serious: Yes (Hospitalization)
  Sender: FDA-Public Use
  Company Number: None

PATIENT
  Age: 65 Year
  Sex: Male
  Weight: 109.6 kg

DRUGS (1)
  1. AMOXICILLIN/CLAVULANATE [Suspect]
     Indication: UPPER RESPIRATORY TRACT INFECTION
     Dosage: 1 TAB EVERY DAY PO
     Dates: start: 20131117, end: 20131119

REACTIONS (2)
  - Liver function test abnormal [None]
  - Diarrhoea [None]
